FAERS Safety Report 5347086-8 (Version None)
Quarter: 2007Q2

REPORT INFORMATION
  Report Type: 
  Country: None (occurrence: None)
  Receive Date: 20070604
  Receipt Date: 20070522
  Transmission Date: 20071010
  Serious: Yes (Other)
  Sender: FDA-Public Use
  Company Number: CERZ-11719

PATIENT
  Age: 56 Year
  Sex: Female
  Weight: 55.4 kg

DRUGS (1)
  1. CEREZYME [Suspect]
     Indication: GAUCHER'S DISEASE
     Dosage: 800 UNITS Q2WKS IV
     Route: 042
     Dates: start: 19970630

REACTIONS (5)
  - CHOLECYSTECTOMY [None]
  - GALLBLADDER DISORDER [None]
  - LOCALISED OEDEMA [None]
  - PHARYNGEAL OEDEMA [None]
  - POST PROCEDURAL SWELLING [None]
